FAERS Safety Report 21300617 (Version 1)
Quarter: 2022Q3

REPORT INFORMATION
  Report Type: Other
  Country: EG (occurrence: None)
  Receive Date: 20220907
  Receipt Date: 20220907
  Transmission Date: 20221026
  Serious: Yes (Other)
  Sender: FDA-Public Use
  Company Number: EG-ROCHE-3169496

PATIENT
  Age: 25 Year
  Sex: Male
  Weight: 51 kg

DRUGS (1)
  1. OCREVUS [Suspect]
     Active Substance: OCRELIZUMAB
     Indication: Multiple sclerosis
     Route: 042
     Dates: start: 20210921

REACTIONS (5)
  - Blindness transient [Recovered/Resolved]
  - Sensory disturbance [Recovered/Resolved]
  - Multiple sclerosis [Unknown]
  - Tremor [Not Recovered/Not Resolved]
  - Musculoskeletal stiffness [Recovered/Resolved]

NARRATIVE: CASE EVENT DATE: 20220802
